FAERS Safety Report 8272754-8 (Version None)
Quarter: 2012Q2

REPORT INFORMATION
  Report Type: 
  Country: None (occurrence: None)
  Receive Date: 20120411
  Receipt Date: 20120405
  Transmission Date: 20120825
  Serious: Yes (Other)
  Sender: FDA-Public Use
  Company Number: US-AMGEN-USASP2012016984

PATIENT
  Age: 78 Year
  Sex: Male
  Weight: 97.959 kg

DRUGS (14)
  1. DIGOXIN [Concomitant]
  2. SIMVASTATIN [Concomitant]
  3. NPLATE [Suspect]
     Indication: IDIOPATHIC THROMBOCYTOPENIC PURPURA
     Dosage: 2 MUG/KG, QWK
     Route: 058
     Dates: start: 20090202, end: 20120319
  4. DIGOXIN [Concomitant]
  5. MULTIVITAMIN                       /00097801/ [Concomitant]
  6. LANTUS [Concomitant]
  7. HUMALOG [Concomitant]
     Indication: DIABETES MELLITUS
  8. PRAVASTATIN [Concomitant]
  9. TRAMADOL HCL [Concomitant]
  10. CARVEDILOL [Concomitant]
  11. LANTUS [Concomitant]
     Indication: DIABETES MELLITUS
  12. TRAMADOL HCL [Concomitant]
  13. PRAVASTATIN [Concomitant]
  14. HUMALOG [Concomitant]

REACTIONS (5)
  - DRUG SPECIFIC ANTIBODY PRESENT [None]
  - THROMBOCYTOPENIA [None]
  - HEADACHE [None]
  - PLATELET COUNT DECREASED [None]
  - DIZZINESS [None]
